FAERS Safety Report 10241120 (Version 1)
Quarter: 2014Q2

REPORT INFORMATION
  Report Type: Spontaneous
  Country: US (occurrence: US)
  Receive Date: 20140617
  Receipt Date: 20140617
  Transmission Date: 20141212
  Serious: No
  Sender: FDA-Public Use
  Company Number: US-009507513-1406USA007498

PATIENT
  Sex: Female

DRUGS (1)
  1. EMEND [Suspect]
     Indication: PROPHYLAXIS OF NAUSEA AND VOMITING
     Dosage: 150 MG, ONE IV DOSE, PRODUCT: EMEND VIAL (SDV, MDV OR ADITIVE)
     Route: 042
     Dates: start: 20140610

REACTIONS (1)
  - Pain in extremity [Unknown]
